FAERS Safety Report 5742936-5 (Version None)
Quarter: 2008Q2

REPORT INFORMATION
  Report Type: 
  Country: None (occurrence: None)
  Receive Date: 20080515
  Receipt Date: 20080515
  Transmission Date: 20081010
  Serious: Yes (Life-Threatening, Disabling)
  Sender: FDA-Public Use
  Company Number: None

PATIENT
  Age: 53 Year
  Sex: Male
  Weight: 81.6475 kg

DRUGS (1)
  1. ADVAIR  250MCG  GLAXO SMITH KLIEN [Suspect]
     Indication: ASTHMA
     Dosage: 250MCG 1 TO 2 X DAILY PO
     Route: 048
     Dates: start: 20060103, end: 20080203

REACTIONS (5)
  - BRONCHITIS [None]
  - DIARRHOEA [None]
  - INFLAMMATION [None]
  - LUNG DISORDER [None]
  - SQUAMOUS CELL CARCINOMA [None]
